FAERS Safety Report 14806212 (Version 2)
Quarter: 2018Q2

REPORT INFORMATION
  Report Type: Report from Study
  Country: US (occurrence: US)
  Receive Date: 20180425
  Receipt Date: 20180509
  Transmission Date: 20180711
  Serious: Yes (Death, Other)
  Sender: FDA-Public Use
  Company Number: US-BRISTOL-MYERS SQUIBB COMPANY-BMS-2018-037844

PATIENT
  Age: 45 Year
  Sex: Female
  Weight: 46.6 kg

DRUGS (2)
  1. NIVOLUMAB [Suspect]
     Active Substance: NIVOLUMAB
     Indication: CHORDOMA
     Dosage: 240 MG, UNK
     Route: 042
     Dates: start: 20171215
  2. IPILIMUMAB [Suspect]
     Active Substance: IPILIMUMAB
     Indication: CHORDOMA
     Dosage: 1 MG/KG, UNK
     Route: 042
     Dates: start: 20171215

REACTIONS (1)
  - Death [Fatal]

NARRATIVE: CASE EVENT DATE: 20180414
